FAERS Safety Report 5411217-1 (Version None)
Quarter: 2007Q3

REPORT INFORMATION
  Report Type: 
  Country: None (occurrence: None)
  Receive Date: 20070810
  Receipt Date: 20070806
  Transmission Date: 20080115
  Serious: Yes (Other)
  Sender: FDA-Public Use
  Company Number: B0480856A

PATIENT
  Age: 84 Year
  Sex: Female
  Weight: 52 kg

DRUGS (13)
  1. VALTREX [Suspect]
     Indication: HERPES ZOSTER
     Dosage: 1000MG THREE TIMES PER DAY
     Route: 048
     Dates: start: 20070717, end: 20070719
  2. PONTAL [Concomitant]
     Route: 048
  3. MUCOSTA [Concomitant]
     Route: 048
  4. ARASENA-A [Concomitant]
     Route: 042
  5. UNKNOWN DRUG [Concomitant]
     Route: 042
  6. GLYCEOL [Concomitant]
     Route: 042
  7. NEUROTROPIN [Concomitant]
  8. NEOLAMIN [Concomitant]
     Route: 042
  9. ADALAT [Concomitant]
     Route: 048
  10. SOLON [Concomitant]
  11. ALOSENN [Concomitant]
     Route: 048
  12. LENDORMIN [Concomitant]
     Route: 048
  13. SELTOUCH [Concomitant]
     Route: 062

REACTIONS (3)
  - DYSARTHRIA [None]
  - MUSCULAR WEAKNESS [None]
  - RENAL FAILURE ACUTE [None]
